FAERS Safety Report 5324410-3 (Version None)
Quarter: 2007Q2

REPORT INFORMATION
  Report Type: 
  Country: None (occurrence: None)
  Receive Date: 20070514
  Receipt Date: 20070503
  Transmission Date: 20071010
  Serious: Yes (Other)
  Sender: FDA-Public Use
  Company Number: US-PFIZER INC-2007036212

PATIENT
  Sex: Female
  Weight: 56.363 kg

DRUGS (7)
  1. CELEBREX [Suspect]
     Indication: PROCEDURAL PAIN
     Route: 048
  2. LYRICA [Suspect]
     Indication: PROCEDURAL PAIN
     Route: 048
  3. COLLAGEN [Suspect]
  4. ZOLOFT [Concomitant]
  5. MAGNESIUM SULFATE [Concomitant]
  6. CALCIUM WITH VITAMIN D [Concomitant]
  7. PRENATAL VITAMINS [Concomitant]

REACTIONS (5)
  - ADVERSE DRUG REACTION [None]
  - CONSTIPATION [None]
  - DRUG INEFFECTIVE [None]
  - INFLAMMATION [None]
  - NERVE COMPRESSION [None]
